FAERS Safety Report 24396763 (Version 2)
Quarter: 2024Q4

REPORT INFORMATION
  Report Type: Spontaneous
  Country: US (occurrence: US)
  Receive Date: 20241004
  Receipt Date: 20241024
  Transmission Date: 20250115
  Serious: Yes (Hospitalization, Other)
  Sender: INCYTE
  Company Number: US-INCYTE CORPORATION-2024IN010419

PATIENT

DRUGS (1)
  1. JAKAFI [Suspect]
     Active Substance: RUXOLITINIB
     Indication: Essential thrombocythaemia
     Dosage: 15 MILLIGRAM, BID
     Route: 048
     Dates: start: 202302

REACTIONS (4)
  - Pancytopenia [Recovered/Resolved]
  - Dizziness [Unknown]
  - Body temperature decreased [Unknown]
  - Off label use [Unknown]

NARRATIVE: CASE EVENT DATE: 20230201
